FAERS Safety Report 9745605 (Version 3)
Quarter: 2015Q1

REPORT INFORMATION
  Report Type: Spontaneous
  Country: US (occurrence: US)
  Receive Date: 20131211
  Receipt Date: 20150105
  Transmission Date: 20150721
  Serious: No
  Sender: FDA-Public Use
  Company Number: US-PFIZER INC-2013349524

PATIENT
  Age: 67 Year
  Sex: Male

DRUGS (3)
  1. INLYTA [Suspect]
     Active Substance: AXITINIB
     Dosage: 5 MG, UNK
     Dates: start: 20131201, end: 20141218
  2. INLYTA [Suspect]
     Active Substance: AXITINIB
     Indication: RENAL CELL CARCINOMA
     Dosage: 5 MG, 2X/DAY
     Dates: start: 20131102
  3. INLYTA [Suspect]
     Active Substance: AXITINIB
     Dosage: 5 MG TABLET TAKE 2 TABLET (10 MG) TWICE DAILY
     Route: 048
     Dates: start: 201312

REACTIONS (5)
  - Palmar-plantar erythrodysaesthesia syndrome [Unknown]
  - Renal disorder [Unknown]
  - Chills [Unknown]
  - Diarrhoea [Unknown]
  - Fatigue [Unknown]
